FAERS Safety Report 20726271 (Version 2)
Quarter: 2022Q2

REPORT INFORMATION
  Report Type: Report from Study
  Country: US (occurrence: US)
  Receive Date: 20220419
  Receipt Date: 20220420
  Transmission Date: 20220721
  Serious: Yes (Other)
  Sender: FDA-Public Use
  Company Number: US-PFIZER INC-202200546417

PATIENT
  Sex: Female

DRUGS (2)
  1. DOXORUBICIN HYDROCHLORIDE [Suspect]
     Active Substance: DOXORUBICIN HYDROCHLORIDE
     Indication: Spindle cell sarcoma
     Dosage: 60 MG/M2 - 75 MG/M2, CYCLIC
  2. IFOSFAMIDE [Suspect]
     Active Substance: IFOSFAMIDE
     Indication: Spindle cell sarcoma
     Dosage: 7.5 - 10 G/M2, CYCLIC

REACTIONS (2)
  - Oligohydramnios [Unknown]
  - Maternal exposure during pregnancy [Unknown]
